FAERS Safety Report 6288456-3 (Version None)
Quarter: 2009Q3

REPORT INFORMATION
  Report Type: 
  Country: None (occurrence: None)
  Receive Date: 20090729
  Receipt Date: 20090721
  Transmission Date: 20100115
  Serious: Yes (Death)
  Sender: FDA-Public Use
  Company Number: B0572097A

PATIENT
  Sex: Male

DRUGS (9)
  1. SEREVENT [Suspect]
     Indication: CHRONIC OBSTRUCTIVE PULMONARY DISEASE
     Dosage: 50MCG TWICE PER DAY
     Route: 055
     Dates: start: 20090401
  2. VITAMEDIN [Concomitant]
     Route: 065
  3. MYSLEE [Concomitant]
     Dosage: 5MG PER DAY
     Route: 048
  4. MUCODYNE [Concomitant]
     Dosage: 3G PER DAY
     Route: 048
  5. ONON [Concomitant]
     Route: 048
  6. THEO-DUR [Concomitant]
     Dosage: 400MG PER DAY
     Route: 048
  7. FLIVAS [Concomitant]
     Dosage: 25MG PER DAY
     Route: 048
  8. BIOFERMIN [Concomitant]
     Dosage: 3G PER DAY
     Route: 048
  9. DIAZEPAM [Concomitant]
     Dosage: 2MG PER DAY
     Route: 048

REACTIONS (7)
  - DYSGEUSIA [None]
  - GLOSSITIS [None]
  - GLOSSODYNIA [None]
  - HYPOAESTHESIA ORAL [None]
  - NEOPLASM MALIGNANT [None]
  - THIRST [None]
  - THIRST DECREASED [None]
